FAERS Safety Report 24780786 (Version 1)
Quarter: 2024Q4

REPORT INFORMATION
  Report Type: Spontaneous
  Country: AU (occurrence: AU)
  Receive Date: 20241227
  Receipt Date: 20241227
  Transmission Date: 20250114
  Serious: Yes (Death, Other)
  Sender: JOHNSON AND JOHNSON
  Company Number: AU-VIIV HEALTHCARE-AU2024APC158975

PATIENT
  Age: 60 Year
  Sex: Male

DRUGS (2)
  1. RILPIVIRINE [Suspect]
     Active Substance: RILPIVIRINE
     Indication: Product used for unknown indication
     Dosage: UNK UNK, Q2M ONE SYRINGE (CABOTEGRAVIR 600MG AND RILPIVIRINE 900MG) EVERY 56 DAYS
     Route: 030
  2. CABOTEGRAVIR [Suspect]
     Active Substance: CABOTEGRAVIR
     Indication: Product used for unknown indication
     Dosage: UNK UNK, Q2M ONE SYRINGE (CABOTEGRAVIR 600MG AND RILPIVIRINE 900MG) EVERY 56 DAYS
     Route: 030

REACTIONS (1)
  - Death [Fatal]
